FAERS Safety Report 16739518 (Version 3)
Quarter: 2019Q3

REPORT INFORMATION
  Report Type: Spontaneous
  Country: IT (occurrence: IT)
  Receive Date: 20190826
  Receipt Date: 20190908
  Transmission Date: 20191005
  Serious: Yes (Other)
  Sender: FDA-Public Use
  Company Number: IT-AUROBINDO-AUR-APL-2019-045321

PATIENT

DRUGS (2)
  1. PARACETAMOL 1G [Suspect]
     Active Substance: ACETAMINOPHEN
     Indication: HEADACHE
     Dosage: 1000 MILLIGRAM, TOTAL
     Route: 065
  2. APREMILAST [Interacting]
     Active Substance: APREMILAST
     Indication: PSORIASIS
     Dosage: 30 MILLIGRAM, TWO TIMES A DAY
     Route: 065

REACTIONS (3)
  - Drug interaction [Recovered/Resolved]
  - Skin oedema [Unknown]
  - Symmetrical drug-related intertriginous and flexural exanthema [Recovered/Resolved]
